FAERS Safety Report 7096327-8 (Version None)
Quarter: 2010Q4

REPORT INFORMATION
  Report Type: 
  Country: None (occurrence: None)
  Receive Date: 20101109
  Receipt Date: 20101109
  Transmission Date: 20110411
  Serious: Yes (Life-Threatening, Hospitalization)
  Sender: FDA-Public Use
  Company Number: None

PATIENT
  Age: 15 Year
  Sex: Male
  Weight: 68.0396 kg

DRUGS (1)
  1. DEPAKOTE [Suspect]
     Indication: BIPOLAR DISORDER
     Dosage: 500MG TWICE A DAY PO
     Route: 048
     Dates: start: 20091120, end: 20101020

REACTIONS (4)
  - BLOOD POTASSIUM INCREASED [None]
  - HEPATOMEGALY [None]
  - PANCREATITIS ACUTE [None]
  - RENAL DISORDER [None]
